FAERS Safety Report 13668968 (Version 2)
Quarter: 2017Q2

REPORT INFORMATION
  Report Type: Spontaneous
  Country: FR (occurrence: FR)
  Receive Date: 20170620
  Receipt Date: 20170627
  Transmission Date: 20170830
  Serious: Yes (Hospitalization)
  Sender: FDA-Public Use
  Company Number: FR-PFIZER INC-2017257147

PATIENT
  Age: 44 Year
  Sex: Male

DRUGS (36)
  1. SPECIAFOLDINE [Concomitant]
     Active Substance: FOLIC ACID
     Dosage: 5 MG, 1X/DAY
  2. SUBUTEX [Concomitant]
     Active Substance: BUPRENORPHINE HYDROCHLORIDE
     Dosage: 8 MG, 2X/DAY
  3. VALIUM [Concomitant]
     Active Substance: DIAZEPAM
     Dosage: 10 MG, 3X/DAY
  4. VANCOMYCIN [Concomitant]
     Active Substance: VANCOMYCIN
     Indication: INTERVERTEBRAL DISCITIS
     Dosage: UNK
     Dates: start: 201705, end: 20170503
  5. SALAZOPYRINE [Suspect]
     Active Substance: SULFASALAZINE
     Indication: PSORIATIC ARTHROPATHY
     Dosage: 1000 MG, 2X/DAY
     Route: 048
     Dates: end: 20170501
  6. LEVOFLOXACINE ARROW [Suspect]
     Active Substance: LEVOFLOXACIN
     Indication: INTERVERTEBRAL DISCITIS
     Dosage: 500 MG, DAILY
     Route: 048
     Dates: start: 20170503, end: 20170503
  7. KARDEGIC [Suspect]
     Active Substance: ASPIRIN LYSINE
     Dosage: 75 MG, 1X/DAY
     Route: 048
     Dates: start: 20170507, end: 20170514
  8. PARACETAMOL [Concomitant]
     Active Substance: ACETAMINOPHEN
     Dosage: 1 G, 3X/DAY
  9. HYDROCORTISONE. [Concomitant]
     Active Substance: HYDROCORTISONE
     Dosage: 20 MG, 1X/DAY
  10. TERCIAN [Concomitant]
     Active Substance: CYAMEMAZINE
     Dosage: 3 GTT, 3X/DAY
  11. KARDEGIC [Suspect]
     Active Substance: ASPIRIN LYSINE
     Indication: CARDIOVASCULAR EVENT PROPHYLAXIS
     Dosage: 160 MG, 1X/DAY
     Route: 048
     Dates: end: 20170501
  12. OXYCODONE [Suspect]
     Active Substance: OXYCODONE
     Indication: INTERVERTEBRAL DISCITIS
     Dosage: UNK
     Route: 048
     Dates: start: 20170507
  13. TAREG [Concomitant]
     Active Substance: VALSARTAN
     Dosage: 80 MG, 1X/DAY
  14. FORLAX [Concomitant]
     Active Substance: POLYETHYLENE GLYCOL 4000
     Dosage: 2 DF, 1X/DAY
  15. AMIKACIN [Concomitant]
     Active Substance: AMIKACIN
     Indication: INTERVERTEBRAL DISCITIS
     Dosage: UNK
     Dates: start: 201705, end: 20170503
  16. LEVOFLOXACINE ARROW [Suspect]
     Active Substance: LEVOFLOXACIN
     Dosage: 1 G, DAILY
     Route: 048
     Dates: start: 20170504, end: 201705
  17. INIPOMP [Concomitant]
     Active Substance: PANTOPRAZOLE SODIUM
     Dosage: 20 MG, DAILY
  18. PIPERACILLIN AND TAZOBACTAM [Concomitant]
     Active Substance: PIPERACILLIN SODIUM\TAZOBACTAM SODIUM
     Indication: INTERVERTEBRAL DISCITIS
     Dosage: UNK
     Dates: start: 201705, end: 20170503
  19. CEFAZOLINE MYLAN [Suspect]
     Active Substance: CEFAZOLIN SODIUM
     Dosage: 500 MG, DAILY
     Route: 042
     Dates: start: 201705, end: 20170515
  20. INEXIUM [Suspect]
     Active Substance: ESOMEPRAZOLE
     Dosage: 1 DF, 1X/DAY
     Route: 048
     Dates: start: 20170505
  21. CACIT D3 [Concomitant]
     Active Substance: CALCIUM\CHOLECALCIFEROL
     Dosage: 1 DF, 1X/DAY
  22. EBASTINE [Concomitant]
     Active Substance: EBASTINE
     Dosage: UNK UNK, 1X/DAY
  23. HALOPERIDOL. [Concomitant]
     Active Substance: HALOPERIDOL
     Dosage: UNK
     Dates: start: 201705
  24. CEFAZOLINE MYLAN [Suspect]
     Active Substance: CEFAZOLIN SODIUM
     Indication: INTERVERTEBRAL DISCITIS
     Dosage: 3.5 G, DAILY
     Route: 042
     Dates: start: 20170503, end: 20170503
  25. LEVOFLOXACINE ARROW [Suspect]
     Active Substance: LEVOFLOXACIN
     Dosage: 125 MG, DAILY
     Route: 048
     Dates: start: 201705
  26. HYDROCORTISONE. [Concomitant]
     Active Substance: HYDROCORTISONE
     Dosage: 30 MG, 1X/DAY
  27. FORTIMEL [Concomitant]
     Active Substance: DIETARY SUPPLEMENT
     Dosage: 6 DF, DAILY
  28. TIORFAN [Suspect]
     Active Substance: RACECADOTRIL
     Indication: DIARRHOEA
     Dosage: 1 DF, 3X/DAY
     Route: 048
     Dates: start: 20170506, end: 20170516
  29. VITAMIN B1 AND B6 [Concomitant]
     Active Substance: PYRIDOXINE HYDROCHLORIDE\THIAMINE HYDROCHLORIDE
     Dosage: UNK
     Dates: start: 201705
  30. SALAZOPYRINE [Suspect]
     Active Substance: SULFASALAZINE
     Dosage: 500 MG, 2X/DAY
     Route: 048
     Dates: start: 20170507, end: 20170514
  31. CEFAZOLINE MYLAN [Suspect]
     Active Substance: CEFAZOLIN SODIUM
     Dosage: 7.7 G, DAILY
     Route: 042
     Dates: start: 20170504, end: 20170504
  32. CEFAZOLINE MYLAN [Suspect]
     Active Substance: CEFAZOLIN SODIUM
     Dosage: 8 G, DAILY
     Route: 042
     Dates: start: 20170505, end: 201705
  33. PAROXETIN BASICS [Suspect]
     Active Substance: PAROXETINE
     Indication: DEPRESSION
     Dosage: 20 MG, 1X/DAY
     Route: 048
     Dates: start: 20170508
  34. OXAZEPAM. [Suspect]
     Active Substance: OXAZEPAM
     Indication: ANXIETY
     Dosage: 25 MG, 2X/DAY
     Route: 048
     Dates: start: 201705
  35. NIQUITIN [Suspect]
     Active Substance: NICOTINE
     Indication: EX-TOBACCO USER
     Dosage: 14 MG, 1X/DAY
     Route: 062
     Dates: start: 20170508
  36. COUMADINE [Concomitant]
     Active Substance: WARFARIN SODIUM
     Dosage: 4 MG, 1X/DAY

REACTIONS (1)
  - Renal failure [Not Recovered/Not Resolved]

NARRATIVE: CASE EVENT DATE: 20170510
